FAERS Safety Report 20724276 (Version 1)
Quarter: 2022Q2

REPORT INFORMATION
  Report Type: Spontaneous
  Country: NL (occurrence: NL)
  Receive Date: 20220419
  Receipt Date: 20220419
  Transmission Date: 20220721
  Serious: Yes (Other)
  Sender: FDA-Public Use
  Company Number: None

PATIENT
  Age: 82 Year
  Sex: Male
  Weight: 89 kg

DRUGS (7)
  1. TAMSULOSIN [Suspect]
     Active Substance: TAMSULOSIN
     Indication: Prostatic disorder
     Dosage: .4 MILLIGRAM DAILY; TAMSULOSINE CAPSULE MGA 0,4MG / BRAND NAME NOT SPECIFIED
     Route: 065
     Dates: start: 20220303, end: 20220313
  2. BISOPROLOL [Concomitant]
     Active Substance: BISOPROLOL
     Dosage: BISOPROLOL TABLET 2,5MG / BRAND NAME NOT SPECIFIED,THERAPY START DATE ASKU, THERAPY END DATE ASKU
  3. SIMVASTATIN [Concomitant]
     Active Substance: SIMVASTATIN
     Dosage: 40 MG,SIMVASTATINE TABLET FO 40MG / BRAND NAME NOT SPECIFIED,THERAPY START DATE ASKU, THERAPY END DA
  4. DESLORATADINE [Concomitant]
     Active Substance: DESLORATADINE
     Dosage: DESLORATADINE TABLET 5MG / BRAND NAME NOT SPECIFIED, THERAPY START DATE ASKU, THERAPY END DATE ASKU
  5. EZETIMIBE [Concomitant]
     Active Substance: EZETIMIBE
     Dosage: EZETIMIB TABLET 10MG / BRAND NAME NOT SPECIFIED, 10 MG, THERAPY START DATE ASKU, THERAPY END DATE AS
  6. AMLODIPINE BESYLATE [Concomitant]
     Active Substance: AMLODIPINE BESYLATE
     Dosage: 2,5 MG, AMLODIPINE BESILATE / BRAND NAME NOT SPECIFIED, THERAPY START DATE ASKU, THERAPY END DATE AS
  7. SYMBICORT [Concomitant]
     Active Substance: BUDESONIDE\FORMOTEROL FUMARATE DIHYDRATE
     Dosage: BUDESONIDE/FORMOTEROL AEROSOL 200/6UG/DO / SYMBICORT AEROSOL 200/6MCG/DOSE AEROSOL 120DO, THERAPY ST

REACTIONS (9)
  - Haemorrhagic diathesis [Recovering/Resolving]
  - Malaise [Recovering/Resolving]
  - Chills [Recovering/Resolving]
  - Rash papular [Recovering/Resolving]
  - Peripheral swelling [Recovering/Resolving]
  - Listless [Recovering/Resolving]
  - Back pain [Recovering/Resolving]
  - Insomnia [Recovering/Resolving]
  - Rash macular [Recovering/Resolving]

NARRATIVE: CASE EVENT DATE: 20220310
